FAERS Safety Report 9706821 (Version 1)
Quarter: 2013Q4

REPORT INFORMATION
  Report Type: Spontaneous
  Country: US (occurrence: None)
  Receive Date: 20131122
  Receipt Date: 20131122
  Transmission Date: 20140711
  Serious: Yes (Disabling, Other)
  Sender: FDA-Public Use
  Company Number: None

PATIENT
  Age: 39 Year
  Sex: Female
  Weight: 72.58 kg

DRUGS (1)
  1. IBUPROFEN [Suspect]
     Indication: TOOTH DISORDER
     Dosage: 600 MG AS NEEDED TAKEN BY MOUTH
     Route: 048
     Dates: start: 20050406, end: 20050407

REACTIONS (2)
  - Back pain [None]
  - Drug hypersensitivity [None]
